FAERS Safety Report 9061725 (Version 3)
Quarter: 2013Q2

REPORT INFORMATION
  Report Type: Spontaneous
  Country: IT (occurrence: IT)
  Receive Date: 20130204
  Receipt Date: 20130403
  Transmission Date: 20140414
  Serious: Yes (Hospitalization)
  Sender: FDA-Public Use
  Company Number: IT-BRISTOL-MYERS SQUIBB COMPANY-17331463

PATIENT
  Age: 66 Year
  Sex: Male

DRUGS (4)
  1. ERBITUX SOLN FOR INF [Suspect]
     Indication: COLON CANCER METASTATIC
     Route: 042
     Dates: start: 20121106, end: 20121106
  2. BISOPROLOL [Concomitant]
     Route: 048
  3. LANSOPRAZOLE [Concomitant]
  4. COUMADIN [Concomitant]
     Dosage: ALSO TAKEN IN ORAL ROUTE
     Route: 042

REACTIONS (1)
  - Atrial fibrillation [Recovering/Resolving]
